FAERS Safety Report 24905096 (Version 1)
Quarter: 2025Q1

REPORT INFORMATION
  Report Type: Spontaneous
  Country: US (occurrence: None)
  Receive Date: 20250130
  Receipt Date: 20250130
  Transmission Date: 20250409
  Serious: Yes (Death)
  Sender: FDA-CTU
  Company Number: None

PATIENT
  Age: 64 Year
  Sex: Male
  Weight: 123.43 kg

DRUGS (1)
  1. IMDELLTRA (AMG757) [Suspect]
     Active Substance: TARLATAMAB
     Indication: Small cell lung cancer
     Route: 040
     Dates: start: 20250127, end: 20250127

REACTIONS (10)
  - Dyspnoea [None]
  - Tremor [None]
  - Heart rate increased [None]
  - Tachypnoea [None]
  - Tachycardia [None]
  - Pyrexia [None]
  - Atrial fibrillation [None]
  - Chest pain [None]
  - Unresponsive to stimuli [None]
  - Cardio-respiratory arrest [None]

NARRATIVE: CASE EVENT DATE: 20250127
